FAERS Safety Report 12221262 (Version 1)
Quarter: 2016Q1

REPORT INFORMATION
  Report Type: Spontaneous
  Country: US (occurrence: None)
  Receive Date: 20160329
  Receipt Date: 20160329
  Transmission Date: 20160526
  Serious: Yes (Disabling)
  Sender: FDA-Public Use
  Company Number: None

PATIENT
  Age: 70 Year
  Sex: Female
  Weight: 71 kg

DRUGS (6)
  1. VITAMIN D3 [Concomitant]
     Active Substance: CHOLECALCIFEROL
  2. ARCOXIA [Concomitant]
     Active Substance: ETORICOXIB
  3. DULOXETINE, 60 MG CADUCEUS PHARMA LTD [Suspect]
     Active Substance: DULOXETINE
     Indication: RHEUMATOID ARTHRITIS
     Route: 048
     Dates: start: 20160325, end: 20160326
  4. DULOXETINE, 60 MG CADUCEUS PHARMA LTD [Suspect]
     Active Substance: DULOXETINE
     Indication: DEPRESSION
     Route: 048
     Dates: start: 20160325, end: 20160326
  5. SULPHASALAZINE [Concomitant]
     Active Substance: SULFASALAZINE
  6. ALENDRONIC ACID [Concomitant]
     Active Substance: ALENDRONIC ACID

REACTIONS (5)
  - Nausea [None]
  - Activities of daily living impaired [None]
  - Vomiting [None]
  - Asthenia [None]
  - Diarrhoea [None]

NARRATIVE: CASE EVENT DATE: 20160325
